FAERS Safety Report 4434291-8 (Version None)
Quarter: 2004Q3

REPORT INFORMATION
  Report Type: 
  Country: None (occurrence: None)
  Receive Date: 20040825
  Receipt Date: 20040812
  Transmission Date: 20050211
  Serious: Yes (Other)
  Sender: FDA-Public Use
  Company Number: 2004056256

PATIENT
  Age: 43 Year
  Sex: Female

DRUGS (1)
  1. NEURONTIN [Suspect]
     Indication: NEUROPATHIC PAIN
     Dosage: ORAL
     Route: 048
     Dates: start: 20010401, end: 20010628

REACTIONS (7)
  - DRUG INEFFECTIVE [None]
  - DYSPHAGIA [None]
  - EMOTIONAL DISTRESS [None]
  - MENTAL IMPAIRMENT [None]
  - MOOD ALTERED [None]
  - REFLEXES ABNORMAL [None]
  - SLEEP DISORDER [None]
